FAERS Safety Report 10162032 (Version 1)
Quarter: 2014Q2

REPORT INFORMATION
  Report Type: Spontaneous
  Country: US (occurrence: US)
  Receive Date: 20140509
  Receipt Date: 20140509
  Transmission Date: 20141212
  Serious: No
  Sender: FDA-Public Use
  Company Number: US-TEVA-421423USA

PATIENT
  Sex: Female

DRUGS (1)
  1. CLARAVIS [Suspect]
     Indication: ACNE
     Dates: start: 20120808, end: 20130108

REACTIONS (5)
  - Gastrointestinal disorder [Unknown]
  - Musculoskeletal disorder [Unknown]
  - Surgery [Unknown]
  - Adverse event [Unknown]
  - Acne [Unknown]
